FAERS Safety Report 22111617 (Version 2)
Quarter: 2023Q1

REPORT INFORMATION
  Report Type: Spontaneous
  Country: JP (occurrence: JP)
  Receive Date: 20230318
  Receipt Date: 20230330
  Transmission Date: 20230417
  Serious: Yes (Hospitalization, Other)
  Sender: FDA-Public Use
  Company Number: JP-MACLEODS PHARMACEUTICALS US LTD-MAC2023040328

PATIENT

DRUGS (8)
  1. LEVOFLOXACIN [Suspect]
     Active Substance: LEVOFLOXACIN
     Indication: Pneumonia
     Dosage: 500 MILLIGRAM, QD; FOR 5 DAYS
     Route: 065
  2. CEFTRIAXONE [Suspect]
     Active Substance: CEFTRIAXONE
     Indication: Pneumonia
     Dosage: 1 GRAM, QD (1 TOTAL)
     Route: 065
  3. FAMOTIDINE [Concomitant]
     Active Substance: FAMOTIDINE
     Indication: Pneumonia
     Dosage: 20 MILLIGRAM, QD
     Route: 065
  4. CARBOCYSTEINE [Concomitant]
     Active Substance: CARBOCYSTEINE
     Indication: Pneumonia
     Dosage: 1500 MILLIGRAM, QD
     Route: 065
  5. AMBROXOL [Concomitant]
     Active Substance: AMBROXOL
     Indication: Pneumonia
     Dosage: 45 MILLIGRAM, QD
     Route: 065
  6. CLOPERASTINE [Concomitant]
     Active Substance: CLOPERASTINE
     Indication: Pneumonia
     Dosage: 30 MILLIGRAM, QD
     Route: 065
  7. TEPRENONE [Concomitant]
     Active Substance: TEPRENONE
     Indication: Pneumonia
     Dosage: 150 MILLIGRAM, QD
     Route: 065
  8. NORFLOXACIN [Suspect]
     Active Substance: NORFLOXACIN
     Indication: Pneumonia
     Dosage: 200 MILLIGRAM, QD
     Route: 065

REACTIONS (2)
  - Toxic encephalopathy [Recovered/Resolved]
  - Rhabdomyolysis [Recovered/Resolved]
